FAERS Safety Report 22341883 (Version 1)
Quarter: 2023Q2

REPORT INFORMATION
  Report Type: Spontaneous
  Country: US (occurrence: US)
  Receive Date: 20230518
  Receipt Date: 20230518
  Transmission Date: 20230721
  Serious: No
  Sender: FDA-Public Use
  Company Number: US-ALKERMES INC.-ALK-2023-002050

PATIENT
  Sex: Male

DRUGS (2)
  1. VIVITROL [Suspect]
     Active Substance: NALTREXONE
     Indication: Product used for unknown indication
     Dosage: 380 MILLIGRAM, QMO
     Route: 030
  2. DEMEROL [Suspect]
     Active Substance: MEPERIDINE HYDROCHLORIDE
     Indication: Colonoscopy
     Dosage: UNK, ONE TIME DOSE
     Route: 065

REACTIONS (1)
  - Contraindicated product administered [Unknown]

NARRATIVE: CASE EVENT DATE: 20230516
